FAERS Safety Report 7818916-2 (Version None)
Quarter: 2011Q4

REPORT INFORMATION
  Report Type: 
  Country: None (occurrence: None)
  Receive Date: 20111017
  Receipt Date: 20111017
  Transmission Date: 20120403
  Serious: Yes (Hospitalization)
  Sender: FDA-Public Use
  Company Number: None

PATIENT
  Sex: Female
  Weight: 70 kg

DRUGS (3)
  1. CYTARABINE [Suspect]
     Dosage: 10.4 G
  2. PRAVASTATIN SODIUM [Suspect]
     Dosage: 10240 MG
  3. IDARUBICIN HCL [Suspect]
     Dosage: 60 MG

REACTIONS (2)
  - ACUTE MYELOID LEUKAEMIA [None]
  - LEUKAEMIA RECURRENT [None]
